FAERS Safety Report 20210000 (Version 1)
Quarter: 2021Q4

REPORT INFORMATION
  Report Type: Spontaneous
  Country: IT (occurrence: IT)
  Receive Date: 20211221
  Receipt Date: 20211221
  Transmission Date: 20220303
  Serious: Yes (Other)
  Sender: FDA-Public Use
  Company Number: IT-MINISAL02-458573

PATIENT
  Age: 71 Year
  Sex: Male
  Weight: 65 kg

DRUGS (5)
  1. IRINOTECAN [Suspect]
     Active Substance: IRINOTECAN
     Indication: Colon cancer recurrent
     Dosage: 225 MILLIGRAM, CYCLICAL
     Route: 042
     Dates: start: 20170720, end: 20171214
  2. IRINOTECAN [Suspect]
     Active Substance: IRINOTECAN
     Dosage: UNK
     Route: 065
  3. LEVOLEUCOVORIN [Suspect]
     Active Substance: LEVOLEUCOVORIN
     Indication: Colon cancer recurrent
     Dosage: 356 MILLIGRAM, CYCLICAL
     Route: 042
     Dates: start: 20170824, end: 20171019
  4. ERBITUX [Suspect]
     Active Substance: CETUXIMAB
     Indication: Colon cancer recurrent
     Dosage: 445 MILLIGRAM, CYCLICAL
     Route: 042
     Dates: start: 20170713, end: 20180207
  5. FLUOROURACIL [Suspect]
     Active Substance: FLUOROURACIL
     Indication: Colon cancer recurrent
     Dosage: 3204 MILLIGRAM, CYCLICAL
     Route: 042
     Dates: start: 20170824, end: 20171019

REACTIONS (3)
  - Thrombocytopenia [Recovering/Resolving]
  - Neutropenia [Recovering/Resolving]
  - Off label use [Recovered/Resolved]

NARRATIVE: CASE EVENT DATE: 20170101
